FAERS Safety Report 6168024-4 (Version None)
Quarter: 2009Q2

REPORT INFORMATION
  Report Type: 
  Country: None (occurrence: None)
  Receive Date: 20090423
  Receipt Date: 20090423
  Transmission Date: 20091009
  Serious: No
  Sender: FDA-Public Use
  Company Number: None

PATIENT
  Sex: Female
  Weight: 74.55 kg

DRUGS (9)
  1. ARICEPT [Suspect]
     Dosage: 10MG TABLET 10 MG QHS ORAL
     Route: 048
     Dates: start: 20081204, end: 20090422
  2. BACTRIM SS (TRIMETHOPRIM /SULFAMETHOXAZOLE SINGLE STRENGTH) [Concomitant]
  3. EVISTA [Concomitant]
  4. FISH OIL CAPSULE (OMEGA-3-FATTY ACIDS) [Concomitant]
  5. LABETALOL (LABETALOL HCL) [Concomitant]
  6. MEMANTINE HCL [Concomitant]
  7. OMEPRAZOLE [Concomitant]
  8. RISPERDAL [Concomitant]
  9. ZOCOR [Concomitant]

REACTIONS (1)
  - DIARRHOEA [None]
